FAERS Safety Report 9360601 (Version 1)
Quarter: 2013Q2

REPORT INFORMATION
  Report Type: Spontaneous
  Country: US (occurrence: None)
  Receive Date: 20130620
  Receipt Date: 20130620
  Transmission Date: 20140414
  Serious: Yes (Other)
  Sender: FDA-Public Use
  Company Number: None

PATIENT
  Age: 74 Year
  Sex: Female

DRUGS (7)
  1. HUMIRA PEN 40MG ABBVIE [Suspect]
     Route: 058
     Dates: start: 20130221, end: 20130619
  2. AZATHIOPRINE [Suspect]
  3. ATORVASTATIN [Concomitant]
  4. ATENOLOL [Concomitant]
  5. CALCIPOTRIENE [Concomitant]
  6. CLOBETASOL [Concomitant]
  7. HYDROXYZINE [Concomitant]

REACTIONS (2)
  - Ear infection [None]
  - Drug ineffective [None]
